FAERS Safety Report 5573098-5 (Version None)
Quarter: 2007Q4

REPORT INFORMATION
  Report Type: 
  Country: None (occurrence: None)
  Receive Date: 20071220
  Receipt Date: 20071203
  Transmission Date: 20080405
  Serious: Yes (Hospitalization)
  Sender: FDA-Public Use
  Company Number: 8027151

PATIENT
  Age: 44 Year
  Sex: Male
  Weight: 70 kg

DRUGS (3)
  1. KEPPRA [Suspect]
     Indication: COMPLEX PARTIAL SEIZURES
     Dosage: 1500 MG/D; PO
     Route: 048
     Dates: start: 20070919, end: 20070922
  2. KEPPRA [Suspect]
     Indication: EPILEPSY
     Dosage: 1500 MG/D; PO
     Route: 048
     Dates: start: 20070919, end: 20070922
  3. DICLOFENAC SODIUM [Suspect]
     Indication: NECK PAIN
     Dosage: 75 MG 2/D;ORAL
     Route: 048
     Dates: start: 20070916, end: 20070917

REACTIONS (3)
  - DERMATITIS ALLERGIC [None]
  - RASH GENERALISED [None]
  - SCAB [None]
